FAERS Safety Report 17833189 (Version 1)
Quarter: 2020Q2

REPORT INFORMATION
  Report Type: Spontaneous
  Country: US (occurrence: US)
  Receive Date: 20200528
  Receipt Date: 20200528
  Transmission Date: 20200714
  Serious: Yes (Other)
  Sender: FDA-Public Use
  Company Number: US-BEH-2020117883

PATIENT
  Age: 73 Year
  Sex: Female

DRUGS (1)
  1. HIZENTRA [Suspect]
     Active Substance: HUMAN IMMUNOGLOBULIN G
     Indication: IMMUNODEFICIENCY COMMON VARIABLE
     Dosage: 18 GRAM, QOW
     Route: 058
     Dates: start: 20190802

REACTIONS (6)
  - Dementia [Unknown]
  - Skin laceration [Unknown]
  - Anxiety [Unknown]
  - Confusional state [Unknown]
  - Fall [Unknown]
  - Migraine [Unknown]

NARRATIVE: CASE EVENT DATE: 20200510
